FAERS Safety Report 6942186-0 (Version None)
Quarter: 2010Q3

REPORT INFORMATION
  Report Type: 
  Country: None (occurrence: None)
  Receive Date: 20100823
  Receipt Date: 20100812
  Transmission Date: 20110219
  Serious: Yes (Other)
  Sender: FDA-Public Use
  Company Number: 2010US002644

PATIENT
  Age: 66 Year
  Sex: Female
  Weight: 86 kg

DRUGS (12)
  1. PROGRAF [Suspect]
     Indication: LIVER TRANSPLANT
     Dosage: 1 MG, UID/QD, ORAL
     Route: 048
     Dates: start: 19990823
  2. IMMUNOSUPPRESSIVE AGENTS [Suspect]
     Indication: IMMUNOSUPPRESSANT DRUG THERAPY
  3. LOPRESSOR [Concomitant]
  4. PROCARDIA [Concomitant]
  5. TRICOR [Concomitant]
  6. INSULIN NPH (INSULIN ISOPHANE BOVINE) [Concomitant]
  7. LEVOTHYROXINE [Concomitant]
  8. MYCOPHENOLIC ACID [Concomitant]
  9. VENTOLIN [Concomitant]
  10. NASONEX [Concomitant]
  11. ASPIRIN [Concomitant]
  12. PLAVIX [Concomitant]

REACTIONS (4)
  - CONDITION AGGRAVATED [None]
  - DIABETES MELLITUS [None]
  - DIABETIC NEPHROPATHY [None]
  - NEPHROPATHY TOXIC [None]
